FAERS Safety Report 4943745-7 (Version None)
Quarter: 2006Q1

REPORT INFORMATION
  Report Type: 
  Country: None (occurrence: None)
  Receive Date: 20060310
  Receipt Date: 20060303
  Transmission Date: 20060701
  Serious: Yes (Hospitalization)
  Sender: FDA-Public Use
  Company Number: 2006018131

PATIENT
  Age: 64 Year
  Sex: Male

DRUGS (4)
  1. SOMAVERT [Suspect]
     Indication: ACROMEGALY
     Dosage: 15 MG (15 MG, 1 IN 1 D), SUBCUTANEOUS
     Route: 058
     Dates: start: 20050909
  2. DESMOPRESSIN [Concomitant]
  3. LEVOTHYROXINE SODIUM [Concomitant]
  4. TESTOVIRON (TESTOSTERONE ENANTATE) [Concomitant]

REACTIONS (1)
  - HICCUPS [None]
